FAERS Safety Report 11288975 (Version 1)
Quarter: 2015Q3

REPORT INFORMATION
  Report Type: Spontaneous
  Country: US (occurrence: US)
  Receive Date: 20150721
  Receipt Date: 20150721
  Transmission Date: 20151125
  Serious: No
  Sender: FDA-Public Use
  Company Number: US-UNITED THERAPEUTICS-UNT-2014-012609

PATIENT
  Age: 68 Year
  Sex: Female
  Weight: 89.34 kg

DRUGS (5)
  1. ADCIRCA [Concomitant]
     Active Substance: TADALAFIL
     Indication: PRODUCT USED FOR UNKNOWN INDICATION
  2. TRACLEER [Concomitant]
     Active Substance: BOSENTAN
     Indication: PRODUCT USED FOR UNKNOWN INDICATION
  3. TYVASO [Suspect]
     Active Substance: TREPROSTINIL
     Indication: PULMONARY HYPERTENSION
     Dosage: 18-54 MICROGRAMS, QID
     Dates: start: 20140122
  4. WARFARIN [Concomitant]
     Active Substance: WARFARIN
     Indication: PRODUCT USED FOR UNKNOWN INDICATION
  5. REMODULIN [Suspect]
     Active Substance: TREPROSTINIL
     Indication: PULMONARY HYPERTENSION
     Dosage: 0.018 ?G/KG/MIN, CONTINUING
     Route: 058
     Dates: start: 20141125

REACTIONS (10)
  - Malaise [Recovering/Resolving]
  - Bronchitis [Unknown]
  - Diarrhoea [Unknown]
  - Cough [Recovered/Resolved]
  - Drug intolerance [Recovering/Resolving]
  - Dyspnoea [Unknown]
  - Infusion site warmth [Unknown]
  - Infusion site pain [Recovered/Resolved]
  - Pulmonary arterial hypertension [Recovering/Resolving]
  - Infusion site erythema [Recovered/Resolved]

NARRATIVE: CASE EVENT DATE: 2014
